FAERS Safety Report 4601688-2 (Version None)
Quarter: 2005Q1

REPORT INFORMATION
  Report Type: 
  Country: None (occurrence: None)
  Receive Date: 20050131
  Receipt Date: 20040928
  Transmission Date: 20050727
  Serious: No
  Sender: FDA-Public Use
  Company Number: 200417418US

PATIENT
  Age: 17 Year
  Sex: Male

DRUGS (2)
  1. KETEK [Suspect]
     Dosage: QD
  2. KETEK [Suspect]
     Dosage: HS

REACTIONS (2)
  - VISION BLURRED [None]
  - VISUAL DISTURBANCE [None]
